FAERS Safety Report 10019597 (Version 2)
Quarter: 2014Q2

REPORT INFORMATION
  Report Type: Spontaneous
  Country: GB (occurrence: GB)
  Receive Date: 20140318
  Receipt Date: 20140421
  Transmission Date: 20141212
  Serious: Yes (Other)
  Sender: FDA-Public Use
  Company Number: GB-PFIZER INC-2014075961

PATIENT
  Age: 51 Year
  Sex: Female

DRUGS (1)
  1. CHAMPIX [Suspect]
     Dosage: 1 MG, 2X/DAY
     Dates: start: 20140117, end: 20140206

REACTIONS (2)
  - Haematemesis [Recovered/Resolved]
  - Malaise [Recovered/Resolved]
